FAERS Safety Report 19794815 (Version 2)
Quarter: 2021Q3

REPORT INFORMATION
  Report Type: Spontaneous
  Country: SG (occurrence: SG)
  Receive Date: 20210907
  Receipt Date: 20210914
  Transmission Date: 20211014
  Serious: Yes (Hospitalization, Other)
  Sender: FDA-Public Use
  Company Number: NVSC2021SG144698

PATIENT
  Age: 56 Year
  Sex: Male

DRUGS (1)
  1. KYMRIAH [Suspect]
     Active Substance: TISAGENLECLEUCEL
     Indication: DIFFUSE LARGE B-CELL LYMPHOMA
     Dosage: 5.1 X 10E8
     Route: 065
     Dates: start: 20210104

REACTIONS (12)
  - Muscle disorder [Recovered/Resolved]
  - Pyrexia [Recovered/Resolved]
  - Hallucination [Recovered/Resolved]
  - Creatinine renal clearance decreased [Unknown]
  - Blood lactate dehydrogenase increased [Unknown]
  - Cytokine release syndrome [Unknown]
  - Platelet count decreased [Unknown]
  - Insomnia [Recovered/Resolved]
  - Lymphocyte count decreased [Unknown]
  - Diffuse large B-cell lymphoma [Unknown]
  - Malignant neoplasm progression [Unknown]
  - Nodule [Unknown]

NARRATIVE: CASE EVENT DATE: 20210112
